FAERS Safety Report 7771266-5 (Version None)
Quarter: 2011Q3

REPORT INFORMATION
  Report Type: 
  Country: None (occurrence: None)
  Receive Date: 20110922
  Receipt Date: 20110919
  Transmission Date: 20111222
  Serious: Yes (Other)
  Sender: FDA-Public Use
  Company Number: DE-PFIZER INC-2011210189

PATIENT
  Age: 63 Year
  Sex: Female
  Weight: 85 kg

DRUGS (3)
  1. SEROQUEL [Suspect]
     Dosage: 25 MG
  2. VENLAFAXINE HCL [Suspect]
     Dosage: 75 MG
  3. MIRTAZAPINE [Suspect]
     Dosage: 30 MG

REACTIONS (1)
  - HERPES OPHTHALMIC [None]
